FAERS Safety Report 20684501 (Version 1)
Quarter: 2022Q2

REPORT INFORMATION
  Report Type: Spontaneous
  Country: BE (occurrence: BE)
  Receive Date: 20220407
  Receipt Date: 20220407
  Transmission Date: 20220721
  Serious: Yes (Hospitalization)
  Sender: FDA-Public Use
  Company Number: None

PATIENT
  Age: 53 Year
  Sex: Female

DRUGS (10)
  1. METHOTREXATE [Suspect]
     Active Substance: METHOTREXATE
     Indication: Product used for unknown indication
     Dosage: STOPPED FOR ALMOST A YEAR, NOW RECENTLY STARTED AGAIN
  2. VAXZEVRIA [Suspect]
     Active Substance: AZD-1222
     Indication: COVID-19 immunisation
     Dosage: FIRST DOSE ADMINISTERED
     Dates: start: 20210521
  3. PREDNISOLONE [Concomitant]
     Active Substance: PREDNISOLONE
  4. TRAMADOL HYDROCHLORIDE [Concomitant]
     Active Substance: TRAMADOL HYDROCHLORIDE
     Dosage: STRENGTH  50 MG
  5. LIPITOR [Concomitant]
     Active Substance: ATORVASTATIN CALCIUM
     Dosage: STRENGTH 20 MG
  6. OMEPRAZOLE [Concomitant]
     Active Substance: OMEPRAZOLE
     Dosage: STRENGTH 40 MG
  7. SARILUMAB [Concomitant]
     Active Substance: SARILUMAB
     Dosage: STRENGTH 200 MG
     Route: 058
  8. FOLIC ACID [Concomitant]
     Active Substance: FOLIC ACID
     Dosage: DAY AFTER MTX (TEMPORARILY HAS ALSO BEEN DISCONTINUED)
  9. LYNESTRENOL [Concomitant]
     Active Substance: LYNESTRENOL
     Dosage: STRENGTH 5 MG
  10. XARELTO [Concomitant]
     Active Substance: RIVAROXABAN
     Dosage: STARTED AFTER EMBOLISM

REACTIONS (7)
  - Pulmonary embolism [Not Recovered/Not Resolved]
  - Painful respiration [Not Recovered/Not Resolved]
  - Pain in extremity [Not Recovered/Not Resolved]
  - Musculoskeletal pain [Not Recovered/Not Resolved]
  - Fatigue [Not Recovered/Not Resolved]
  - Back pain [Not Recovered/Not Resolved]
  - Peripheral embolism [Not Recovered/Not Resolved]

NARRATIVE: CASE EVENT DATE: 20210605
